FAERS Safety Report 21609936 (Version 1)
Quarter: 2022Q4

REPORT INFORMATION
  Report Type: Spontaneous
  Country: US (occurrence: None)
  Receive Date: 20221117
  Receipt Date: 20221117
  Transmission Date: 20230113
  Serious: Yes (Other)
  Sender: FDA-Public Use
  Company Number: None

PATIENT
  Sex: Male

DRUGS (1)
  1. GAMUNEX-C [Suspect]
     Active Substance: HUMAN IMMUNOGLOBULIN G
     Indication: Kidney transplant rejection

REACTIONS (3)
  - Feeling cold [None]
  - Tremor [None]
  - Infusion related reaction [None]

NARRATIVE: CASE EVENT DATE: 20221116
